FAERS Safety Report 5441664-3 (Version None)
Quarter: 2007Q3

REPORT INFORMATION
  Report Type: 
  Country: None (occurrence: None)
  Receive Date: 20070904
  Receipt Date: 20070831
  Transmission Date: 20080115
  Serious: Yes (Hospitalization)
  Sender: FDA-Public Use
  Company Number: JP-BAYER-200710591BYL

PATIENT
  Age: 36 Year
  Sex: Male

DRUGS (4)
  1. CIPROFLOXACIN [Suspect]
     Route: 048
     Dates: start: 20070811
  2. CELESTAMINE [Concomitant]
     Route: 048
     Dates: start: 20070811
  3. ASTHPHYLLIN [Concomitant]
     Route: 048
     Dates: start: 20070811
  4. RUEFRIEN [Concomitant]
     Route: 048
     Dates: start: 20070811

REACTIONS (1)
  - RHABDOMYOLYSIS [None]
